FAERS Safety Report 6858447-X (Version None)
Quarter: 2010Q3

REPORT INFORMATION
  Report Type: 
  Country: None (occurrence: None)
  Receive Date: 20100719
  Receipt Date: 20080204
  Transmission Date: 20110219
  Serious: No
  Sender: FDA-Public Use
  Company Number: US-PFIZER INC-2008012671

PATIENT
  Sex: Male
  Weight: 77.272 kg

DRUGS (5)
  1. CHANTIX [Suspect]
     Indication: SMOKING CESSATION THERAPY
     Dates: start: 20080130
  2. EFFEXOR [Concomitant]
  3. INSULIN [Concomitant]
  4. ANTIHYPERTENSIVES [Concomitant]
     Indication: HYPERTENSION
  5. CHOLESTEROL- AND TRIGLYCERIDE REDUCERS [Concomitant]
     Indication: BLOOD CHOLESTEROL INCREASED

REACTIONS (4)
  - CHEST DISCOMFORT [None]
  - DISTURBANCE IN ATTENTION [None]
  - FATIGUE [None]
  - MALAISE [None]
